FAERS Safety Report 25743458 (Version 1)
Quarter: 2025Q3

REPORT INFORMATION
  Report Type: Report from Study
  Country: US (occurrence: US)
  Receive Date: 20250831
  Receipt Date: 20250831
  Transmission Date: 20251021
  Serious: Yes (Hospitalization, Other)
  Sender: ALEXION PHARMACEUTICALS
  Company Number: 202508USA011784US

PATIENT
  Sex: Female

DRUGS (1)
  1. OLAPARIB [Suspect]
     Active Substance: OLAPARIB
     Indication: Ovarian cancer
     Dosage: 200 MILLIGRAM, BID
     Dates: start: 202407

REACTIONS (5)
  - Off label use [Unknown]
  - Cerebrovascular accident [Unknown]
  - Blood pressure increased [Unknown]
  - Headache [Unknown]
  - Nausea [Unknown]
